FAERS Safety Report 4486524-X (Version None)
Quarter: 2004Q4

REPORT INFORMATION
  Report Type: 
  Country: None (occurrence: None)
  Receive Date: 20041021
  Receipt Date: 20041005
  Transmission Date: 20050328
  Serious: Yes (Hospitalization)
  Sender: FDA-Public Use
  Company Number: 2004238324TR

PATIENT
  Age: 44 Year
  Sex: Female

DRUGS (1)
  1. SOLU-MEDROL [Suspect]
     Dosage: 1G, QD, IV
     Route: 042

REACTIONS (3)
  - BRAIN OEDEMA [None]
  - CEREBRAL THROMBOSIS [None]
  - CEREBRAL VENOUS THROMBOSIS [None]
